FAERS Safety Report 7885221-8 (Version None)
Quarter: 2011Q4

REPORT INFORMATION
  Report Type: 
  Country: None (occurrence: None)
  Receive Date: 20111102
  Receipt Date: 20111025
  Transmission Date: 20120403
  Serious: Yes (Hospitalization, Other)
  Sender: FDA-Public Use
  Company Number: PHHY2011CL94538

PATIENT
  Age: 77 Year
  Sex: Male

DRUGS (1)
  1. VALSARTAN  AND HYDROCHLOROTHIAZIDE [Suspect]
     Dosage: 160/25 MG

REACTIONS (1)
  - SUBDURAL HAEMATOMA [None]
